FAERS Safety Report 6394238-4 (Version None)
Quarter: 2009Q4

REPORT INFORMATION
  Report Type: 
  Country: None (occurrence: None)
  Receive Date: 20091006
  Receipt Date: 20090923
  Transmission Date: 20100525
  Serious: Yes (Other)
  Sender: FDA-Public Use
  Company Number: 1000008834

PATIENT
  Sex: Female

DRUGS (1)
  1. MEMANTINE HCL [Suspect]
     Dosage: 15 MG (15 MG, 1 IN 1 D), ORAL
     Route: 048
     Dates: start: 20080801

REACTIONS (1)
  - PEMPHIGUS [None]
